FAERS Safety Report 6006873-3 (Version None)
Quarter: 2008Q4

REPORT INFORMATION
  Report Type: 
  Country: None (occurrence: None)
  Receive Date: 20081217
  Receipt Date: 20071113
  Transmission Date: 20090506
  Serious: No
  Sender: FDA-Public Use
  Company Number: US-ASTRAZENECA-2007UW26294

PATIENT
  Age: 58 Year
  Sex: Female
  Weight: 65.3 kg

DRUGS (7)
  1. CRESTOR [Suspect]
     Route: 048
     Dates: start: 20071001
  2. PAROXETINE HCL [Concomitant]
  3. ALTACE [Concomitant]
  4. INHALER [Concomitant]
     Route: 055
  5. LISINOPRIL [Concomitant]
  6. INDAPAMIDE [Concomitant]
  7. OXYGEN [Concomitant]

REACTIONS (1)
  - SENSATION OF HEAVINESS [None]
